FAERS Safety Report 11930316 (Version 1)
Quarter: 2016Q1

REPORT INFORMATION
  Report Type: Spontaneous
  Country: CN (occurrence: CN)
  Receive Date: 20160120
  Receipt Date: 20160120
  Transmission Date: 20160526
  Serious: Yes (Other)
  Sender: FDA-Public Use
  Company Number: CN-PFIZER INC-2016026580

PATIENT
  Age: 33 Year
  Sex: Male
  Weight: 72 kg

DRUGS (10)
  1. DESLORATADINE. [Concomitant]
     Active Substance: DESLORATADINE
     Indication: HYPERSENSITIVITY
     Dosage: 5 MG, 1X/DAY
     Route: 048
     Dates: start: 20150824, end: 20150828
  2. PANTOPRAZOLE [Suspect]
     Active Substance: PANTOPRAZOLE SODIUM
     Indication: PROPHYLAXIS AGAINST GASTROINTESTINAL ULCER
     Dosage: 40 MG, 1X/DAY
     Route: 041
     Dates: start: 20150821, end: 20150823
  3. HYDROXYUREA. [Concomitant]
     Active Substance: HYDROXYUREA
     Indication: LEUKOCYTOSIS
     Dosage: 1 G, 1X/DAY
     Route: 048
     Dates: start: 20150820, end: 20150825
  4. CIMETIDINE [Concomitant]
     Active Substance: CIMETIDINE
     Indication: PROPHYLAXIS AGAINST GASTROINTESTINAL ULCER
     Dosage: 0.4 G, 1X/DAY
     Route: 041
     Dates: start: 20150819, end: 20150821
  5. CYCLIC ADENOSINE MONOPHOSPHATE [Concomitant]
     Dosage: 80 MG, 1X/DAY
     Route: 041
     Dates: start: 20150821, end: 20150823
  6. LORNOXICAM [Concomitant]
     Active Substance: LORNOXICAM
     Indication: ANALGESIC THERAPY
     Dosage: 16 MG, 1X/DAY
     Route: 041
     Dates: start: 20150819, end: 20150821
  7. DEXAMETHASONE. [Concomitant]
     Active Substance: DEXAMETHASONE
     Indication: ADJUVANT THERAPY
     Dosage: 10 MG, 1X/DAY
     Route: 041
  8. DIISOPROPYLAMINE DICHLOROACETATE [Concomitant]
     Indication: PROPHYLAXIS
     Dosage: 80 MG, 1X/DAY
     Route: 041
     Dates: start: 20150823, end: 20150828
  9. CELEBREX [Suspect]
     Active Substance: CELECOXIB
     Indication: ANALGESIC THERAPY
     Dosage: 0.2 G, 2X/DAY
     Route: 048
     Dates: start: 20150823, end: 20150828
  10. CYTARABINE HYDROCHLORIDE [Suspect]
     Active Substance: CYTARABINE HYDROCHLORIDE
     Indication: LEUKAEMIA
     Dosage: 25 MG, 1X/DAY
     Route: 041
     Dates: start: 20150822, end: 20150825

REACTIONS (1)
  - Granulocyte count decreased [Unknown]

NARRATIVE: CASE EVENT DATE: 20150827
